FAERS Safety Report 9682521 (Version 4)
Quarter: 2014Q1

REPORT INFORMATION
  Report Type: Spontaneous
  Country: DE (occurrence: DE)
  Receive Date: 20131112
  Receipt Date: 20140219
  Transmission Date: 20141002
  Serious: Yes (Other)
  Sender: FDA-Public Use
  Company Number: DE-BRISTOL-MYERS SQUIBB COMPANY-19787373

PATIENT
  Age: 77 Year
  Sex: Female
  Weight: 78.8 kg

DRUGS (2)
  1. ELIQUIS [Suspect]
     Indication: CEREBROVASCULAR ACCIDENT PROPHYLAXIS
     Dosage: 24AUG2013 - 070CT2013)
     Dates: start: 20130904, end: 20131004
  2. IBUPROFEN [Concomitant]
     Dosage: 1 DF: 600 (UNIT NOS)

REACTIONS (1)
  - Conjunctival haemorrhage [Recovered/Resolved]
